FAERS Safety Report 22284664 (Version 1)
Quarter: 2023Q2

REPORT INFORMATION
  Report Type: Report from Study
  Country: CA (occurrence: CA)
  Receive Date: 20230504
  Receipt Date: 20230504
  Transmission Date: 20230722
  Serious: Yes (Other)
  Sender: FDA-Public Use
  Company Number: CA-JNJFOC-20230411836

PATIENT
  Age: 61 Year
  Sex: Female

DRUGS (1)
  1. SIMPONI [Suspect]
     Active Substance: GOLIMUMAB
     Indication: Psoriatic arthropathy
     Route: 058
     Dates: start: 20230109

REACTIONS (4)
  - Lymphadenopathy [Not Recovered/Not Resolved]
  - Hypertension [Unknown]
  - Arthritis [Unknown]
  - Rash [Unknown]

NARRATIVE: CASE EVENT DATE: 20230404
